FAERS Safety Report 21279949 (Version 1)
Quarter: 2022Q3

REPORT INFORMATION
  Report Type: Spontaneous
  Country: US (occurrence: US)
  Receive Date: 20220901
  Receipt Date: 20220901
  Transmission Date: 20221027
  Serious: No
  Sender: FDA-Public Use
  Company Number: US-GSKCCFUS-Case-01473335_AE-84237

PATIENT
  Sex: Male

DRUGS (1)
  1. BREO ELLIPTA [Suspect]
     Active Substance: FLUTICASONE FUROATE\VILANTEROL TRIFENATATE
     Indication: Product used for unknown indication
     Dosage: 1 PUFF(S), BID (200/25MCG)
     Route: 055
     Dates: start: 202207

REACTIONS (1)
  - Dysphonia [Not Recovered/Not Resolved]

NARRATIVE: CASE EVENT DATE: 20220101
